FAERS Safety Report 9163562 (Version 1)
Quarter: 2013Q1

REPORT INFORMATION
  Report Type: Spontaneous
  Country: US (occurrence: US)
  Receive Date: 20130314
  Receipt Date: 20130314
  Transmission Date: 20140127
  Serious: Yes (Other)
  Sender: FDA-Public Use
  Company Number: US-PFIZER INC-2013081838

PATIENT
  Sex: Female

DRUGS (1)
  1. ADVIL LIQUIGEL [Suspect]
     Indication: HEADACHE
     Dosage: UNK

REACTIONS (4)
  - Overdose [Unknown]
  - Gastric haemorrhage [Unknown]
  - Abdominal pain upper [Unknown]
  - Nausea [Unknown]
